FAERS Safety Report 19929034 (Version 1)
Quarter: 2021Q4

REPORT INFORMATION
  Report Type: Spontaneous
  Country: US (occurrence: US)
  Receive Date: 20211007
  Receipt Date: 20211007
  Transmission Date: 20220303
  Serious: No
  Sender: FDA-Public Use
  Company Number: US-RECORDATI RARE DISEASES INC.-2021002040

PATIENT
  Age: 32 Year
  Sex: Female
  Weight: 46 kg

DRUGS (1)
  1. PANHEMATIN [Suspect]
     Active Substance: HEMIN
     Indication: Product used for unknown indication
     Dosage: 7.5 MILLIGRAM/KILOGRAM
     Route: 065

REACTIONS (2)
  - Chest pain [Unknown]
  - Overdose [Unknown]
